FAERS Safety Report 9677499 (Version 1)
Quarter: 2013Q4

REPORT INFORMATION
  Report Type: Spontaneous
  Country: ES (occurrence: ES)
  Receive Date: 20131108
  Receipt Date: 20131108
  Transmission Date: 20140711
  Serious: Yes (Other)
  Sender: FDA-Public Use
  Company Number: ES-NOVOPROD-391817

PATIENT
  Age: 40 Year
  Sex: Male
  Weight: 148 kg

DRUGS (5)
  1. VICTOZA [Suspect]
     Indication: TYPE 2 DIABETES MELLITUS
     Dosage: 1.8 MG, QD
     Route: 058
     Dates: start: 20130606, end: 20130719
  2. AMLODIPINE [Concomitant]
     Dosage: 10 MG, QD
     Route: 048
     Dates: start: 20130117
  3. VALSARTAN [Concomitant]
     Dosage: 160 MG, QD
     Route: 048
     Dates: start: 20130117
  4. HYDROCHLORTHIAZID [Concomitant]
     Dosage: 125 MG, QD
     Route: 048
     Dates: start: 20130117
  5. METFORMIN [Concomitant]
     Dosage: 850 MG, BID
     Route: 048
     Dates: start: 20130117

REACTIONS (3)
  - Palatal oedema [Recovered/Resolved]
  - Dyspnoea [Recovered/Resolved]
  - Throat irritation [Recovered/Resolved]
